FAERS Safety Report 19112432 (Version 1)
Quarter: 2021Q2

REPORT INFORMATION
  Report Type: Spontaneous
  Country: DE (occurrence: DE)
  Receive Date: 20210408
  Receipt Date: 20210408
  Transmission Date: 20210717
  Serious: Yes (Other)
  Sender: FDA-Public Use
  Company Number: DE-BAYER-2021-118723

PATIENT
  Age: 45 Year
  Sex: Female

DRUGS (1)
  1. VITRAKVI [Suspect]
     Active Substance: LAROTRECTINIB
     Indication: SALIVARY GLAND CANCER
     Dosage: UNK
     Dates: start: 202101

REACTIONS (3)
  - Salivary gland cancer recurrent [None]
  - Pre-existing condition improved [None]
  - Metastases to liver [None]

NARRATIVE: CASE EVENT DATE: 202101
